FAERS Safety Report 14224878 (Version 1)
Quarter: 2017Q4

REPORT INFORMATION
  Report Type: Spontaneous
  Country: US (occurrence: US)
  Receive Date: 20171127
  Receipt Date: 20171127
  Transmission Date: 20180321
  Serious: No
  Sender: FDA-Public Use
  Company Number: US-TEVA-809035ACC

PATIENT
  Sex: Female

DRUGS (1)
  1. RABEPRAZOLE [Suspect]
     Active Substance: RABEPRAZOLE

REACTIONS (4)
  - Treatment noncompliance [Unknown]
  - Intentional dose omission [Unknown]
  - Memory impairment [Unknown]
  - Product storage error [Unknown]
